FAERS Safety Report 4923047-5 (Version None)
Quarter: 2006Q1

REPORT INFORMATION
  Report Type: 
  Country: None (occurrence: None)
  Receive Date: 20060125
  Receipt Date: 20050121
  Transmission Date: 20060701
  Serious: Yes (Hospitalization)
  Sender: FDA-Public Use
  Company Number: HQWYE854126JAN05

PATIENT
  Age: 57 Year
  Sex: Male

DRUGS (2)
  1. CORDARONE [Suspect]
     Indication: ATRIAL FIBRILLATION
     Dosage: 200 MG 1X PER 1 DAY, ORAL ; 400 MG 1X PER 1 DAY, ORAL
     Route: 048
     Dates: end: 20041214
  2. CORDARONE [Suspect]
     Indication: ATRIAL FIBRILLATION
     Dosage: 200 MG 1X PER 1 DAY, ORAL ; 400 MG 1X PER 1 DAY, ORAL
     Route: 048
     Dates: start: 20041228, end: 20050115

REACTIONS (1)
  - HYPERSENSITIVITY [None]
